FAERS Safety Report 13082149 (Version 1)
Quarter: 2017Q1

REPORT INFORMATION
  Report Type: Spontaneous
  Country: NO (occurrence: NO)
  Receive Date: 20170103
  Receipt Date: 20170103
  Transmission Date: 20170428
  Serious: Yes (Life-Threatening, Hospitalization)
  Sender: FDA-Public Use
  Company Number: NO-BAYER-2016-243934

PATIENT
  Age: 76 Year
  Sex: Male

DRUGS (3)
  1. CIPROFLOXACIN. [Suspect]
     Active Substance: CIPROFLOXACIN
     Indication: DEVICE RELATED INFECTION
     Dosage: 750 MG, BID
     Route: 048
     Dates: start: 20161012
  2. RIMACTAN [Concomitant]
     Active Substance: RIFAMPIN
     Indication: DEVICE RELATED INFECTION
     Dosage: 450 MG, BID
     Route: 048
     Dates: start: 20161004
  3. CLOXACILLIN [Concomitant]
     Active Substance: CLOXACILLIN
     Indication: DEVICE RELATED INFECTION
     Dosage: 2 G, QID
     Route: 042
     Dates: start: 20161004, end: 20161012

REACTIONS (2)
  - Aortic valve prolapse [Not Recovered/Not Resolved]
  - Cardiac failure acute [Recovered/Resolved with Sequelae]

NARRATIVE: CASE EVENT DATE: 20161014
